FAERS Safety Report 6147565-X (Version None)
Quarter: 2009Q2

REPORT INFORMATION
  Report Type: 
  Country: None (occurrence: None)
  Receive Date: 20090408
  Receipt Date: 20090304
  Transmission Date: 20091009
  Serious: No
  Sender: FDA-Public Use
  Company Number: US-BAYER-200814943BCC

PATIENT
  Age: 51 Year
  Sex: Female
  Weight: 82 kg

DRUGS (6)
  1. ALEVE (CAPLET) [Suspect]
     Indication: ARTHRITIS
     Dosage: BOTTLE COUNT 150
     Dates: start: 20081203, end: 20081210
  2. TYLENOL (CAPLET) [Concomitant]
  3. HYZAAR [Concomitant]
  4. ESTRATEST [Concomitant]
  5. CENTRUM SILVER [Concomitant]
  6. REPLENEX [Concomitant]

REACTIONS (2)
  - ARTHRALGIA [None]
  - JOINT STIFFNESS [None]
